FAERS Safety Report 7597809 (Version 3)
Quarter: 2012Q4

REPORT INFORMATION
  Report Type: 
  Country: CA (occurrence: CA)
  Receive Date: 20100920
  Receipt Date: 20121026
  Transmission Date: 20130627
  Serious: Yes (Life-Threatening, Hospitalization)
  Sender: FDA-Public Use
  Company Number: PHHY2010CA61139

PATIENT
  Sex: Female

DRUGS (2)
  1. SANDOSTATIN LAR [Suspect]
     Indication: ACROMEGALY
     Dosage: 30 mg, BIW
     Route: 030
     Dates: start: 20100211
  2. SANDOSTATIN LAR [Suspect]
     Indication: PANCREATIC NEUROENDOCRINE TUMOUR
     Dosage: 60 mg, Every 4 weeks
     Route: 030

REACTIONS (4)
  - Sepsis [Recovering/Resolving]
  - Hepatic neoplasm [Unknown]
  - Postoperative abscess [Unknown]
  - Pyrexia [Unknown]
